FAERS Safety Report 23572116 (Version 2)
Quarter: 2024Q2

REPORT INFORMATION
  Report Type: Spontaneous
  Country: US (occurrence: US)
  Receive Date: 20240227
  Receipt Date: 20240528
  Transmission Date: 20240716
  Serious: No
  Sender: FDA-Public Use
  Company Number: US-AVADEL CNS PHARMACEUTICALS, LLC-2023AVA00508

PATIENT
  Age: 43 Year
  Sex: Male

DRUGS (4)
  1. LUMRYZ [Suspect]
     Active Substance: SODIUM OXYBATE
     Indication: Narcolepsy
     Dosage: 7.5 G, 1X/DAY NIGHTLY
     Dates: start: 20231201
  2. LUMRYZ [Suspect]
     Active Substance: SODIUM OXYBATE
     Indication: Narcolepsy
     Dosage: 9 G, ONCE NIGHTLY
     Route: 048
     Dates: end: 202403
  3. LUMRYZ [Suspect]
     Active Substance: SODIUM OXYBATE
     Dosage: PARTIAL PACKET OF THE 9 G DOSE, ONCE NIGHTLY
     Route: 048
     Dates: start: 20240329, end: 20240329
  4. UNSPECIFIED INGREDIENT [Suspect]
     Active Substance: UNSPECIFIED INGREDIENT
     Dosage: UNK

REACTIONS (11)
  - Middle insomnia [Not Recovered/Not Resolved]
  - Insomnia [Not Recovered/Not Resolved]
  - Catathrenia [Recovered/Resolved]
  - Migraine [Recovered/Resolved]
  - Abnormal behaviour [Recovered/Resolved]
  - Gingival pain [Recovered/Resolved]
  - Toothache [Recovered/Resolved]
  - Pain of skin [Recovered/Resolved]
  - Skin burning sensation [Recovered/Resolved]
  - Blood pressure increased [Unknown]
  - Wrong technique in product usage process [Recovered/Resolved]

NARRATIVE: CASE EVENT DATE: 20231201
